FAERS Safety Report 9812654 (Version 2)
Quarter: 2014Q1

REPORT INFORMATION
  Report Type: Spontaneous
  Country: JP (occurrence: JP)
  Receive Date: 20140113
  Receipt Date: 20140225
  Transmission Date: 20141002
  Serious: Yes (Hospitalization)
  Sender: FDA-Public Use
  Company Number: JP-ROCHE-1331885

PATIENT
  Age: 64 Year
  Sex: Female
  Weight: 60 kg

DRUGS (4)
  1. ACTEMRA [Suspect]
     Indication: RHEUMATOID ARTHRITIS
     Route: 041
     Dates: start: 20130124, end: 20131226
  2. ACTEMRA [Suspect]
     Indication: JUVENILE IDIOPATHIC ARTHRITIS
  3. RHEUMATREX [Suspect]
     Indication: RHEUMATOID ARTHRITIS
     Dosage: 2-3 TIMES/WEEK
     Route: 048
     Dates: start: 20051201, end: 20131221
  4. AZULFIDINE-EN [Concomitant]
     Indication: RHEUMATOID ARTHRITIS
     Route: 048
     Dates: start: 20050605, end: 20130918

REACTIONS (1)
  - Interstitial lung disease [Recovered/Resolved]
